FAERS Safety Report 4631018-1 (Version None)
Quarter: 2005Q2

REPORT INFORMATION
  Report Type: 
  Country: None (occurrence: None)
  Receive Date: 20050406
  Receipt Date: 20050406
  Transmission Date: 20051028
  Serious: Yes (Other)
  Sender: FDA-Public Use
  Company Number: None

PATIENT
  Age: 17 Year
  Sex: Female
  Weight: 61.2356 kg

DRUGS (2)
  1. BACTRIM DS [Suspect]
     Indication: ACNE
     Dosage: 1 TABLET TWICE DAILY
     Dates: start: 20050324
  2. BACTRIM DS [Suspect]
     Indication: ACNE
     Dosage: 1 TABLET TWICE DAILY
     Dates: start: 20050329

REACTIONS (2)
  - ABDOMINAL PAIN [None]
  - ADVERSE EVENT [None]
